FAERS Safety Report 7487264 (Version 3)
Quarter: 2014Q1

REPORT INFORMATION
  Report Type: Spontaneous
  Country: US (occurrence: US)
  Receive Date: 20100719
  Receipt Date: 20140114
  Transmission Date: 20141002
  Serious: No
  Sender: FDA-Public Use
  Company Number: US-JNJFOC-20100703280

PATIENT
  Age: 57 Year
  Sex: Male
  Weight: 84.37 kg

DRUGS (9)
  1. SANDOZ FENTANYL TRANSDERMAL SYSTEM [Suspect]
     Indication: BACK PAIN
     Route: 062
     Dates: start: 2005, end: 201008
  2. SANDOZ FENTANYL TRANSDERMAL SYSTEM [Suspect]
     Indication: BACK PAIN
     Route: 062
     Dates: end: 20100702
  3. SANDOZ FENTANYL TRANSDERMAL SYSTEM [Suspect]
     Indication: PAIN
     Route: 062
     Dates: start: 20100702
  4. UNSPECIFIED FENTANYL TRANSDERMAL SYSTEM [Suspect]
     Indication: PAIN
     Route: 062
     Dates: start: 2000
  5. DURAGESIC [Suspect]
     Indication: BACK PAIN
     Route: 062
     Dates: start: 2000, end: 2005
  6. DURAGESIC [Suspect]
     Indication: BACK PAIN
     Dosage: 2 OF 100 UG/HR??NDC#: 050458-094-05
     Route: 062
     Dates: start: 20100716
  7. DILANTIN [Concomitant]
     Indication: CONVULSION
     Route: 048
  8. CADUET [Concomitant]
     Indication: BLOOD CHOLESTEROL INCREASED
     Dosage: DOSE: 5/80MG
     Route: 048
     Dates: start: 2008
  9. CADUET [Concomitant]
     Indication: HYPERTENSION
     Dosage: DOSE: 5/80MG
     Route: 048
     Dates: start: 2008

REACTIONS (8)
  - Hypertension [Not Recovered/Not Resolved]
  - Product quality issue [Unknown]
  - Blood cholesterol increased [Not Recovered/Not Resolved]
  - Drug prescribing error [Not Recovered/Not Resolved]
  - Drug ineffective [Not Recovered/Not Resolved]
  - Drug ineffective [Not Recovered/Not Resolved]
  - Malaise [Not Recovered/Not Resolved]
  - Withdrawal syndrome [Not Recovered/Not Resolved]
